FAERS Safety Report 5553981-7 (Version None)
Quarter: 2007Q4

REPORT INFORMATION
  Report Type: 
  Country: None (occurrence: None)
  Receive Date: 20071211
  Receipt Date: 20071127
  Transmission Date: 20080405
  Serious: Yes (Other)
  Sender: FDA-Public Use
  Company Number: 230323J07USA

PATIENT
  Age: 60 Year
  Sex: Female
  Weight: 72.5755 kg

DRUGS (6)
  1. REBIF [Suspect]
     Indication: MULTIPLE SCLEROSIS
     Dosage: 44 MCG, 3 IN 1 WEEKS, SUBCUTANEOUS
     Route: 058
     Dates: start: 20070617
  2. LISINOPRIL [Concomitant]
  3. TRIAMTERENE AND HYDROCHLOROTHIAZID (DYAZIDE) [Concomitant]
  4. SIMVASTATIN [Concomitant]
  5. PROZAC [Concomitant]
  6. TRAZODONE HCL [Concomitant]

REACTIONS (2)
  - DIABETES MELLITUS [None]
  - HYPERTENSION [None]
